FAERS Safety Report 23364928 (Version 7)
Quarter: 2024Q3

REPORT INFORMATION
  Report Type: Spontaneous
  Country: CA (occurrence: CA)
  Receive Date: 20240104
  Receipt Date: 20240928
  Transmission Date: 20241017
  Serious: Yes (Other)
  Sender: CELLTRION
  Company Number: CA-CELLTRION INC.-2023CA025282

PATIENT

DRUGS (19)
  1. INFLECTRA [Suspect]
     Active Substance: INFLIXIMAB-DYYB
     Indication: Rheumatoid arthritis
     Dosage: 400 MG, INDUCTION DOSES AT WEEK 0, 2 AND 6
     Route: 042
     Dates: start: 20230509, end: 20230624
  2. INFLECTRA [Suspect]
     Active Substance: INFLIXIMAB-DYYB
     Dosage: 400 MG, EVERY 8 WEEKS
     Route: 042
     Dates: start: 20230821, end: 20230821
  3. INFLECTRA [Suspect]
     Active Substance: INFLIXIMAB-DYYB
     Dosage: 400 MG, EVERY 8 WEEKS
     Route: 042
     Dates: start: 20231114
  4. INFLECTRA [Suspect]
     Active Substance: INFLIXIMAB-DYYB
     Dosage: 400 MG, EVERY 6 WEEKS
     Route: 042
     Dates: start: 20231227, end: 20231227
  5. INFLECTRA [Suspect]
     Active Substance: INFLIXIMAB-DYYB
     Dosage: 400 MG, AFTER 10 WEEKS AND 5 DAYS (PRESCRIBED EVERY 6 WEEKS)
     Route: 042
     Dates: start: 20240312, end: 20240312
  6. INFLECTRA [Suspect]
     Active Substance: INFLIXIMAB-DYYB
     Dosage: 400 MG AFTER 8 WEEKS AND 6 DAYS (PRESCRIBED EVERY 6 WEEKS)
     Route: 042
     Dates: start: 20240513
  7. INFLECTRA [Suspect]
     Active Substance: INFLIXIMAB-DYYB
     Dosage: 400 MG, EVERY 6 WEEKS
     Route: 042
     Dates: start: 20240627
  8. INFLECTRA [Suspect]
     Active Substance: INFLIXIMAB-DYYB
     Dosage: 400 MG, EVERY 6 WEEKS
     Route: 042
     Dates: start: 20240807
  9. INFLECTRA [Suspect]
     Active Substance: INFLIXIMAB-DYYB
     Dosage: 400 MG, 6 WEEKS( EVERY 6 WEEKS)
     Route: 042
     Dates: start: 20240918
  10. ACETAMINOPHEN [Concomitant]
     Active Substance: ACETAMINOPHEN
     Indication: Premedication
     Dosage: 650 MG
     Dates: start: 20240312, end: 20240312
  11. EFFEXOR [Concomitant]
     Active Substance: VENLAFAXINE HYDROCHLORIDE
     Dosage: UNK
  12. GABAPENTIN [Concomitant]
     Active Substance: GABAPENTIN
     Dosage: UNK
  13. GRAVOL [Concomitant]
     Active Substance: DIMENHYDRINATE
     Dosage: UNK
  14. HYDROXYCHLOROQUINE [Concomitant]
     Active Substance: HYDROXYCHLOROQUINE
     Dosage: UNK
  15. HYRIMOZ [Concomitant]
     Active Substance: ADALIMUMAB-ADAZ
     Dosage: UNK
  16. OXYCODONE [Concomitant]
     Active Substance: OXYCODONE
     Dosage: UNK
  17. PREDNISONE [Concomitant]
     Active Substance: PREDNISONE
     Dosage: UNK
  18. RITALIN [Concomitant]
     Active Substance: METHYLPHENIDATE HYDROCHLORIDE
     Dosage: UNK
  19. ZOPICLONE [Concomitant]
     Active Substance: ZOPICLONE
     Dosage: UNK

REACTIONS (11)
  - Blood pressure increased [Not Recovered/Not Resolved]
  - Condition aggravated [Not Recovered/Not Resolved]
  - Headache [Unknown]
  - Pain in jaw [Unknown]
  - Chest pain [Unknown]
  - Visual impairment [Unknown]
  - Heart rate increased [Not Recovered/Not Resolved]
  - Off label use [Unknown]
  - Off label use [Unknown]
  - Intentional product use issue [Unknown]
  - Inappropriate schedule of product administration [Unknown]

NARRATIVE: CASE EVENT DATE: 20231227
